FAERS Safety Report 25866339 (Version 1)
Quarter: 2025Q3

REPORT INFORMATION
  Report Type: Report from Study
  Country: US (occurrence: None)
  Receive Date: 20250930
  Receipt Date: 20250930
  Transmission Date: 20251020
  Serious: No
  Sender: INCYTE
  Company Number: US-INCYTE CORPORATION-2025IN010319

PATIENT
  Age: 68 Year

DRUGS (2)
  1. JAKAFI [Suspect]
     Active Substance: RUXOLITINIB
     Indication: Product used for unknown indication
     Dosage: 5 MILLIGRAM, BID
  2. JAKAFI [Suspect]
     Active Substance: RUXOLITINIB
     Dosage: 20 MILLIGRAM, BID

REACTIONS (8)
  - Pruritus [Unknown]
  - Inflammation [Unknown]
  - Swelling [Unknown]
  - Erythema [Unknown]
  - Bone marrow disorder [Unknown]
  - Nervous system disorder [Unknown]
  - Product availability issue [Unknown]
  - Intentional product use issue [Unknown]
